FAERS Safety Report 7609412-6 (Version None)
Quarter: 2011Q3

REPORT INFORMATION
  Report Type: 
  Country: None (occurrence: None)
  Receive Date: 20110714
  Receipt Date: 20110706
  Transmission Date: 20111222
  Serious: Yes (Other)
  Sender: FDA-Public Use
  Company Number: US-ABBOTT-11P-163-0717384-00

PATIENT
  Age: 65 Year
  Sex: Female

DRUGS (1)
  1. VALPROATE SODIUM [Suspect]
     Indication: CONVULSION
     Dosage: AVERAGE DAILY DOSE OF 1 GM

REACTIONS (2)
  - COGNITIVE DISORDER [None]
  - GAIT DISTURBANCE [None]
